FAERS Safety Report 5680985-6 (Version None)
Quarter: 2008Q1

REPORT INFORMATION
  Report Type: 
  Country: None (occurrence: None)
  Receive Date: 20080325
  Receipt Date: 20070511
  Transmission Date: 20080703
  Serious: Yes (Hospitalization)
  Sender: FDA-Public Use
  Company Number: 08H-163-0313977-00

PATIENT
  Sex: Male

DRUGS (1)
  1. LIDOCAINE HCL 4% TOPICAL SOLUTION (PREATTACHED LTA KIT) (LIDOCAINE HYD [Suspect]
     Indication: DRUG USE FOR UNKNOWN INDICATION
     Dates: start: 20070101, end: 20070101

REACTIONS (2)
  - DEVICE BREAKAGE [None]
  - FOREIGN BODY TRAUMA [None]
